FAERS Safety Report 7944827-8 (Version None)
Quarter: 2011Q4

REPORT INFORMATION
  Report Type: 
  Country: None (occurrence: None)
  Receive Date: 20111129
  Receipt Date: 20111129
  Transmission Date: 20120403
  Serious: Yes (Other)
  Sender: FDA-Public Use
  Company Number: US-PFIZER INC-2011286032

PATIENT
  Sex: Female

DRUGS (8)
  1. ZITHROMAX [Concomitant]
     Indication: BRONCHITIS
     Dosage: UNK
     Dates: end: 20110101
  2. HUMALOG [Concomitant]
     Indication: DIABETES MELLITUS
     Dosage: UNK
  3. CHANTIX [Suspect]
     Indication: SMOKING CESSATION THERAPY
     Dosage: 0.5 MG, DAILY
     Route: 048
     Dates: start: 20111024, end: 20110101
  4. CHANTIX [Suspect]
     Dosage: UNK
     Route: 048
     Dates: start: 20110101
  5. VYTORIN [Concomitant]
     Indication: BLOOD CHOLESTEROL ABNORMAL
     Dosage: UNK
     Route: 048
  6. LISINOPRIL [Concomitant]
     Indication: HYPERTENSION
     Dosage: UNK
  7. LANTUS [Concomitant]
     Indication: DIABETES MELLITUS
     Dosage: UNK
  8. ACTONEL [Concomitant]
     Indication: BONE DISORDER
     Dosage: UNK, WEEKLY

REACTIONS (2)
  - STENT PLACEMENT [None]
  - NAUSEA [None]
